FAERS Safety Report 7853740-6 (Version None)
Quarter: 2011Q4

REPORT INFORMATION
  Report Type: 
  Country: None (occurrence: None)
  Receive Date: 20111026
  Receipt Date: 20111012
  Transmission Date: 20120403
  Serious: Yes (Hospitalization)
  Sender: FDA-Public Use
  Company Number: NL-ACTELION-A-CH2011-55450

PATIENT
  Sex: Male
  Weight: 68.4 kg

DRUGS (5)
  1. SPIRONOLACTONE [Concomitant]
  2. REVATIO [Suspect]
  3. TREPROSTINIL [Concomitant]
  4. SINTROM [Concomitant]
  5. TRACLEER [Suspect]
     Indication: PULMONARY ARTERIAL HYPERTENSION
     Dosage: 250 MG, QD
     Route: 048
     Dates: start: 20110210

REACTIONS (4)
  - PATHOGEN RESISTANCE [None]
  - DIARRHOEA [None]
  - CARDIAC FAILURE [None]
  - SPUTUM CULTURE POSITIVE [None]
